FAERS Safety Report 22330681 (Version 3)
Quarter: 2023Q2

REPORT INFORMATION
  Report Type: Spontaneous
  Country: US (occurrence: US)
  Receive Date: 20230517
  Receipt Date: 20230519
  Transmission Date: 20230722
  Serious: Yes (Other)
  Sender: FDA-Public Use
  Company Number: US-ABBVIE-4769924

PATIENT
  Sex: Male

DRUGS (1)
  1. LUPRON DEPOT [Suspect]
     Active Substance: LEUPROLIDE ACETATE
     Indication: Prostate cancer
     Dosage: START DATE TEXT: 3 YEARS, FREQUENCY: UNKNOWN
     Route: 030
     Dates: start: 2020

REACTIONS (8)
  - Deafness [Unknown]
  - Depression [Unknown]
  - Weight increased [Unknown]
  - Fluid retention [Unknown]
  - Hot flush [Unknown]
  - Hair growth abnormal [Unknown]
  - Arthritis [Unknown]
  - Therapeutic response unexpected [Unknown]
